FAERS Safety Report 5089964-3 (Version None)
Quarter: 2006Q3

REPORT INFORMATION
  Report Type: 
  Country: None (occurrence: None)
  Receive Date: 20060823
  Receipt Date: 20060807
  Transmission Date: 20061208
  Serious: Yes (Hospitalization)
  Sender: FDA-Public Use
  Company Number: US200607000713

PATIENT
  Sex: Female
  Weight: 90.7 kg

DRUGS (2)
  1. ZYPREXA [Suspect]
     Dosage: 5 MG, DAILY (1/D)
     Dates: start: 20030304, end: 20040402
  2. FLUOXETINE HCL [Concomitant]

REACTIONS (3)
  - ANAEMIA [None]
  - BIOPSY LIVER [None]
  - DIABETES MELLITUS [None]
